FAERS Safety Report 6421438-7 (Version None)
Quarter: 2009Q4

REPORT INFORMATION
  Report Type: 
  Country: None (occurrence: None)
  Receive Date: 20091029
  Receipt Date: 20091029
  Transmission Date: 20100525
  Serious: No
  Sender: FDA-Public Use
  Company Number: None

PATIENT
  Age: 86 Year
  Sex: Female
  Weight: 79.8331 kg

DRUGS (1)
  1. DORZOLAMIDE HYDROCHLORIDE AND TIMOLOL MALEATE [Suspect]
     Indication: GLAUCOMA
     Dosage: 2.05% SOL. 2 TIMES A DAY
     Dates: start: 20090122, end: 20091021

REACTIONS (3)
  - DRUG HYPERSENSITIVITY [None]
  - FOREIGN BODY SENSATION IN EYES [None]
  - INSOMNIA [None]
